FAERS Safety Report 21014960 (Version 1)
Quarter: 2022Q2

REPORT INFORMATION
  Report Type: Spontaneous
  Country: ES (occurrence: None)
  Receive Date: 20220628
  Receipt Date: 20220628
  Transmission Date: 20220720
  Serious: Yes (Hospitalization)
  Sender: FDA-Public Use
  Company Number: ES-Unichem Pharmaceuticals (USA) Inc-UCM202206-000578

PATIENT
  Age: 13 Year
  Sex: Male

DRUGS (4)
  1. TRAMADOL HCL [Suspect]
     Active Substance: TRAMADOL HYDROCHLORIDE
     Indication: Overdose
     Dosage: UNKNOWN
  2. MORPHINE [Suspect]
     Active Substance: MORPHINE
     Indication: Overdose
  3. DULOXETINE [Suspect]
     Active Substance: DULOXETINE
     Indication: Overdose
  4. ACETAMINOPHEN [Suspect]
     Active Substance: ACETAMINOPHEN
     Indication: Overdose
     Dosage: UNKNOWN

REACTIONS (7)
  - Bradyphrenia [Recovering/Resolving]
  - Troponin I increased [Recovering/Resolving]
  - Abdominal discomfort [Recovering/Resolving]
  - Respiratory depression [Recovering/Resolving]
  - Miosis [Recovering/Resolving]
  - Hyperamylasaemia [Recovering/Resolving]
  - Intentional overdose [Unknown]
